FAERS Safety Report 4350179-5 (Version None)
Quarter: 2004Q2

REPORT INFORMATION
  Report Type: 
  Country: None (occurrence: None)
  Receive Date: 20040426
  Receipt Date: 20040414
  Transmission Date: 20050107
  Serious: Yes (Hospitalization, Other)
  Sender: FDA-Public Use
  Company Number: US-JNJFOC-20040104214

PATIENT
  Age: 56 Year
  Sex: Female

DRUGS (3)
  1. DURAGESIC [Suspect]
     Indication: PAIN
     Dosage: SEE IMAGE
     Route: 062
     Dates: start: 20030101, end: 20031001
  2. DURAGESIC [Suspect]
     Indication: PAIN
     Dosage: SEE IMAGE
     Route: 062
     Dates: start: 20031001, end: 20040115
  3. LEVOXYL [Concomitant]

REACTIONS (11)
  - ANGIONEUROTIC OEDEMA [None]
  - DEPENDENCE [None]
  - DEPRESSION [None]
  - DRUG WITHDRAWAL SYNDROME [None]
  - HYPERTENSION [None]
  - JOINT ARTHROPLASTY [None]
  - OEDEMA PERIPHERAL [None]
  - RESPIRATORY DISORDER [None]
  - SOMNOLENCE [None]
  - SPINAL FUSION SURGERY [None]
  - SUICIDAL IDEATION [None]
